FAERS Safety Report 25203469 (Version 1)
Quarter: 2025Q2

REPORT INFORMATION
  Report Type: Spontaneous
  Country: US (occurrence: None)
  Receive Date: 20250416
  Receipt Date: 20250416
  Transmission Date: 20250716
  Serious: No
  Sender: FDA-CTU
  Company Number: None

PATIENT

DRUGS (1)
  1. TAFLUPROST [Suspect]
     Active Substance: TAFLUPROST

REACTIONS (4)
  - Ocular hyperaemia [None]
  - Eyelid irritation [None]
  - Eyelid irritation [None]
  - Swelling of eyelid [None]
